FAERS Safety Report 5455787-6 (Version None)
Quarter: 2007Q3

REPORT INFORMATION
  Report Type: 
  Country: None (occurrence: None)
  Receive Date: 20070918
  Receipt Date: 20070702
  Transmission Date: 20080115
  Serious: Yes (Other)
  Sender: FDA-Public Use
  Company Number: US-ASTRAZENECA-2006UW22450

PATIENT
  Sex: Female
  Weight: 75 kg

DRUGS (5)
  1. SEROQUEL [Suspect]
     Indication: SCHIZOPHRENIA
     Route: 048
  2. ABILIFY [Concomitant]
     Dates: start: 20060101
  3. GEODON [Concomitant]
     Dates: start: 20060101
  4. HALDOL [Concomitant]
     Dates: start: 19900101
  5. RISPERDAL [Concomitant]
     Dates: start: 20040101

REACTIONS (2)
  - DIABETES MELLITUS [None]
  - TARDIVE DYSKINESIA [None]
